FAERS Safety Report 6001851-2 (Version None)
Quarter: 2008Q4

REPORT INFORMATION
  Report Type: 
  Country: None (occurrence: None)
  Receive Date: 20081215
  Receipt Date: 20080512
  Transmission Date: 20090506
  Serious: No
  Sender: FDA-Public Use
  Company Number: US-AMGEN-KDL275702

PATIENT
  Sex: Female

DRUGS (8)
  1. ENBREL [Suspect]
     Indication: RHEUMATOID ARTHRITIS
     Route: 058
     Dates: start: 20041014
  2. LEVOXYL [Concomitant]
     Dates: start: 19960101
  3. TRAZODONE HCL [Concomitant]
     Dates: start: 20030701
  4. TRAMADOL HCL [Concomitant]
     Dates: start: 20040203
  5. SALAGEN [Concomitant]
     Dates: start: 20061019
  6. ETODOLAC [Concomitant]
     Dates: start: 20070918
  7. HYDROCODONE BITARTRATE [Concomitant]
     Dates: start: 20071025
  8. LUNESTA [Concomitant]
     Dates: start: 20071025

REACTIONS (2)
  - INFECTION [None]
  - PRURITUS GENERALISED [None]
